FAERS Safety Report 7809677-1 (Version None)
Quarter: 2011Q4

REPORT INFORMATION
  Report Type: 
  Country: None (occurrence: None)
  Receive Date: 20111012
  Receipt Date: 20110919
  Transmission Date: 20120403
  Serious: Yes (Other)
  Sender: FDA-Public Use
  Company Number: US-GLAXOSMITHKLINE-A0942024A

PATIENT
  Sex: Female

DRUGS (1)
  1. ADVAIR DISKUS 100/50 [Suspect]
     Route: 055

REACTIONS (5)
  - FOREIGN BODY ASPIRATION [None]
  - COUGH [None]
  - CHOKING [None]
  - PRODUCT QUALITY ISSUE [None]
  - VOMITING [None]
